FAERS Safety Report 8183112-9 (Version None)
Quarter: 2012Q1

REPORT INFORMATION
  Report Type: 
  Country: None (occurrence: None)
  Receive Date: 20120201
  Receipt Date: 20111117
  Transmission Date: 20120608
  Serious: Yes (Other)
  Sender: FDA-Public Use
  Company Number: 310154USA

PATIENT
  Sex: Male

DRUGS (2)
  1. PROPACET 100 [Suspect]
     Indication: PAIN
  2. PROPOXYPHENE NAPSYLATE W/ ACETAMINOPHEN [Suspect]
     Indication: PAIN

REACTIONS (1)
  - TACHYCARDIA [None]
